FAERS Safety Report 6341485-3 (Version None)
Quarter: 2009Q3

REPORT INFORMATION
  Report Type: 
  Country: None (occurrence: None)
  Receive Date: 20090904
  Receipt Date: 20090831
  Transmission Date: 20100115
  Serious: Yes (Hospitalization)
  Sender: FDA-Public Use
  Company Number: US-ABBOTT-09P-163-0594390-00

PATIENT
  Sex: Female
  Weight: 163.44 kg

DRUGS (8)
  1. DEPAKOTE ER [Suspect]
     Indication: AFFECTIVE DISORDER
     Dosage: 3 TABS IN AM/4 TABS AT BEDTIME
     Dates: start: 20011001
  2. DEPAKOTE ER [Suspect]
     Indication: BIPOLAR DISORDER
  3. ABILIFY [Concomitant]
     Indication: BIPOLAR DISORDER
     Dates: start: 20060401
  4. METFORMIN HCL [Concomitant]
     Indication: DIABETES MELLITUS
  5. METOPROLOL TARTRATE [Concomitant]
     Indication: HYPERTENSION
  6. APRIL 28 [Concomitant]
     Indication: MENSTRUAL CYCLE MANAGEMENT
  7. LEVOXYL [Concomitant]
     Indication: HYPOTHYROIDISM
     Dosage: OFF IT FOR 4 MONTHS
  8. LORAZEPAM [Concomitant]
     Indication: DRUG USE FOR UNKNOWN INDICATION
     Dosage: AS REQUIRED

REACTIONS (5)
  - CONDITION AGGRAVATED [None]
  - CONFUSIONAL STATE [None]
  - FEAR [None]
  - INSOMNIA [None]
  - STRESS [None]
